FAERS Safety Report 11238372 (Version 1)
Quarter: 2015Q3

REPORT INFORMATION
  Report Type: Spontaneous
  Country: JP (occurrence: JP)
  Receive Date: 20150704
  Receipt Date: 20150704
  Transmission Date: 20151125
  Serious: Yes (Other)
  Sender: FDA-Public Use
  Company Number: JP-009507513-1407JPN014095

PATIENT
  Age: 31 Year
  Sex: Female
  Weight: 48 kg

DRUGS (3)
  1. GONADOTROPIN, CHORIONIC [Concomitant]
     Active Substance: CHORIOGONADOTROPIN ALFA
     Dosage: 5  THOUSAND-MILLION UNIT
     Route: 030
     Dates: start: 20140617, end: 20140617
  2. FOLLISTIM [Suspect]
     Active Substance: FOLLITROPIN
     Indication: OVULATION INDUCTION
  3. FOLLISTIM [Suspect]
     Active Substance: FOLLITROPIN
     Indication: INFERTILITY
     Dosage: 50 IU, (50 (UNDER 1000 UNITS))
     Route: 058
     Dates: start: 20140609, end: 20140616

REACTIONS (3)
  - Selective abortion [Unknown]
  - Maternal exposure during pregnancy [Recovered/Resolved]
  - Multiple pregnancy [Unknown]

NARRATIVE: CASE EVENT DATE: 20140718
